FAERS Safety Report 13577491 (Version 1)
Quarter: 2017Q2

REPORT INFORMATION
  Report Type: Spontaneous
  Country: US (occurrence: US)
  Receive Date: 20170524
  Receipt Date: 20170524
  Transmission Date: 20170830
  Serious: No
  Sender: FDA-Public Use
  Company Number: US-MEDA-2017050064

PATIENT
  Age: 59 Year
  Sex: Female
  Weight: 86 kg

DRUGS (4)
  1. IBUPROFEN. [Concomitant]
     Active Substance: IBUPROFEN
  2. GASTROCROM [Suspect]
     Active Substance: CROMOLYN SODIUM
     Indication: MASTOCYTOSIS
     Route: 048
     Dates: start: 201702
  3. LYRICA [Concomitant]
     Active Substance: PREGABALIN
     Indication: PAIN
     Dates: start: 2007
  4. LYRICA [Concomitant]
     Active Substance: PREGABALIN
     Indication: PAIN

REACTIONS (5)
  - Flushing [Recovering/Resolving]
  - Hypersensitivity [Unknown]
  - Fibromyalgia [Not Recovered/Not Resolved]
  - Drug dose omission [Unknown]
  - Chills [Unknown]

NARRATIVE: CASE EVENT DATE: 2017
